FAERS Safety Report 22067591 (Version 1)
Quarter: 2023Q1

REPORT INFORMATION
  Report Type: Spontaneous
  Country: GB (occurrence: GB)
  Receive Date: 20230307
  Receipt Date: 20230307
  Transmission Date: 20230417
  Serious: Yes (Disabling, Other)
  Sender: FDA-Public Use
  Company Number: GB-MHRA-ADR 27709650

PATIENT
  Sex: Female

DRUGS (1)
  1. CIPROFLOXACIN [Suspect]
     Active Substance: CIPROFLOXACIN
     Indication: Chlamydial infection
     Dosage: UNK
     Route: 065
     Dates: start: 2015

REACTIONS (6)
  - Impaired healing [Unknown]
  - Pain in extremity [Unknown]
  - Infected skin ulcer [Unknown]
  - Exostosis [Unknown]
  - Skin ulcer [Unknown]
  - Stress [Unknown]
